FAERS Safety Report 24158648 (Version 1)
Quarter: 2024Q3

REPORT INFORMATION
  Report Type: Spontaneous
  Country: DE (occurrence: DE)
  Receive Date: 20240731
  Receipt Date: 20240731
  Transmission Date: 20241017
  Serious: Yes (Hospitalization)
  Sender: BIOVITRUM
  Company Number: DE-BIOVITRUM-2024-DE-010293

PATIENT
  Age: 17 Year
  Sex: Female
  Weight: 52 kg

DRUGS (1)
  1. KINERET [Suspect]
     Active Substance: ANAKINRA
     Indication: Still^s disease
     Dosage: DAILY TAKEN SINCE 14 YEARS

REACTIONS (7)
  - C-reactive protein increased [Unknown]
  - Underdose [Unknown]
  - Arthralgia [Unknown]
  - Neck pain [Unknown]
  - Pyrexia [Unknown]
  - S100 protein increased [Unknown]
  - Serum amyloid A protein increased [Unknown]
